FAERS Safety Report 16669702 (Version 1)
Quarter: 2019Q3

REPORT INFORMATION
  Report Type: Spontaneous
  Country: US (occurrence: US)
  Receive Date: 20190805
  Receipt Date: 20190805
  Transmission Date: 20191004
  Serious: Yes (Other)
  Sender: FDA-Public Use
  Company Number: US-AMERICAN REGENT INC-2019001649

PATIENT
  Age: 56 Year
  Sex: Male

DRUGS (3)
  1. EPINEPHRINE INJECTION, USP (0517-1071-01) [Suspect]
     Active Substance: EPINEPHRINE
     Indication: EPIDURAL ANAESTHESIA
     Dosage: 100 MICROGRAM, SINGLE
     Route: 008
  2. ESMOLOL HYDROCHLORIDE INJECTION (0517-1810-01) [Suspect]
     Active Substance: ESMOLOL HYDROCHLORIDE
     Indication: PRODUCT USED FOR UNKNOWN INDICATION
     Dosage: UNK UNKNOWN
  3. LIDOCAINE. [Suspect]
     Active Substance: LIDOCAINE
     Indication: EPIDURAL ANAESTHESIA
     Dosage: UNK UNKNOWN
     Route: 008

REACTIONS (5)
  - Supraventricular tachycardia [Recovered/Resolved]
  - Overdose [Unknown]
  - Incorrect route of product administration [Unknown]
  - Blood pressure decreased [Unknown]
  - Drug ineffective [Unknown]
